FAERS Safety Report 7312996-9 (Version None)
Quarter: 2011Q1

REPORT INFORMATION
  Report Type: 
  Country: None (occurrence: None)
  Receive Date: 20110224
  Receipt Date: 20110212
  Transmission Date: 20110831
  Serious: Yes (Other)
  Sender: FDA-Public Use
  Company Number: DE-MYLANLABS-2011S1003003

PATIENT
  Sex: Female

DRUGS (1)
  1. BISOPROLOL FUMARATE [Suspect]
     Route: 048
     Dates: start: 20110211, end: 20110211

REACTIONS (4)
  - SUICIDE ATTEMPT [None]
  - INTENTIONAL OVERDOSE [None]
  - DIZZINESS [None]
  - NAUSEA [None]
